FAERS Safety Report 20557194 (Version 2)
Quarter: 2022Q2

REPORT INFORMATION
  Report Type: Spontaneous
  Country: CO (occurrence: CO)
  Receive Date: 20220307
  Receipt Date: 20220413
  Transmission Date: 20220721
  Serious: No
  Sender: FDA-Public Use
  Company Number: CO-PFIZER INC-202200210613

PATIENT
  Age: 11 Year
  Sex: Male

DRUGS (1)
  1. GENOTROPIN [Suspect]
     Active Substance: SOMATROPIN
     Dosage: 1.4 MG
     Route: 058

REACTIONS (5)
  - Wrong technique in device usage process [Unknown]
  - Expired device used [Unknown]
  - Device electrical finding [Unknown]
  - Device information output issue [Unknown]
  - Drug dose omission by device [Unknown]
